FAERS Safety Report 13470910 (Version 2)
Quarter: 2018Q2

REPORT INFORMATION
  Report Type: Spontaneous
  Country: US (occurrence: US)
  Receive Date: 20170424
  Receipt Date: 20180515
  Transmission Date: 20180711
  Serious: No
  Sender: FDA-Public Use
  Company Number: US-TEVA-729052ACC

PATIENT
  Age: 73 Year
  Sex: Female
  Weight: 76.27 kg

DRUGS (1)
  1. LOSARTAN POTASSIUM. [Suspect]
     Active Substance: LOSARTAN POTASSIUM
     Indication: BLOOD PRESSURE MEASUREMENT
     Dates: start: 20161019, end: 20161220

REACTIONS (4)
  - Gluten sensitivity [Recovering/Resolving]
  - Gastrointestinal disorder [Recovered/Resolved]
  - Gastrointestinal hypomotility [Recovering/Resolving]
  - Abdominal tenderness [Recovering/Resolving]

NARRATIVE: CASE EVENT DATE: 20161021
